FAERS Safety Report 5697439-3 (Version None)
Quarter: 2008Q2

REPORT INFORMATION
  Report Type: 
  Country: None (occurrence: None)
  Receive Date: 20080407
  Receipt Date: 20080328
  Transmission Date: 20081010
  Serious: Yes (Death, Other)
  Sender: FDA-Public Use
  Company Number: PHHY2008JP03589

PATIENT
  Age: 12 Year
  Sex: Male

DRUGS (8)
  1. CYCLOSPORINE [Suspect]
     Indication: ACUTE GRAFT VERSUS HOST DISEASE IN SKIN
     Route: 065
  2. METHYLPREDNISOLONE [Concomitant]
     Indication: ACUTE GRAFT VERSUS HOST DISEASE IN SKIN
     Dosage: 80 MG/DAY
  3. METHYLPREDNISOLONE [Concomitant]
     Dosage: 60 MG, UNK
  4. METHOTREXATE [Concomitant]
     Indication: PROPHYLAXIS AGAINST GRAFT VERSUS HOST DISEASE
  5. TACROLIMUS [Concomitant]
     Indication: PROPHYLAXIS AGAINST GRAFT VERSUS HOST DISEASE
  6. MYCOPHENOLATE MOFETIL [Concomitant]
  7. AZATHIOPRINE [Concomitant]
  8. CYCLOPHOSPHAMIDE [Concomitant]

REACTIONS (14)
  - ACUTE GRAFT VERSUS HOST DISEASE IN INTESTINE [None]
  - BLAST CELLS PRESENT [None]
  - BRONCHOPULMONARY ASPERGILLOSIS [None]
  - COMPUTERISED TOMOGRAM ABNORMAL [None]
  - GRAFT VERSUS HOST DISEASE IN LUNG [None]
  - OBLITERATIVE BRONCHIOLITIS [None]
  - OXYGEN SATURATION DECREASED [None]
  - PANCYTOPENIA [None]
  - PNEUMOMEDIASTINUM [None]
  - RASH [None]
  - RESPIRATORY DISORDER [None]
  - RESPIRATORY FAILURE [None]
  - SEPSIS [None]
  - THROMBOTIC MICROANGIOPATHY [None]
